FAERS Safety Report 4679997-0 (Version None)
Quarter: 2005Q2

REPORT INFORMATION
  Report Type: 
  Country: None (occurrence: None)
  Receive Date: 20050602
  Receipt Date: 20050421
  Transmission Date: 20051028
  Serious: Yes (Other)
  Sender: FDA-Public Use
  Company Number: US-GLAXOSMITHKLINE-A0555403A

PATIENT
  Age: 37 Year

DRUGS (3)
  1. LAMICTAL [Suspect]
     Indication: BIPOLAR II DISORDER
     Route: 065
  2. RISPERDAL [Concomitant]
     Dosage: .5MG AT NIGHT
     Route: 048
  3. ZOLOFT [Concomitant]
     Dosage: 12.5MG PER DAY
     Route: 048

REACTIONS (5)
  - DYSPNOEA [None]
  - LARYNGEAL OEDEMA [None]
  - NAUSEA [None]
  - RASH [None]
  - VOMITING [None]
